FAERS Safety Report 24225496 (Version 4)
Quarter: 2024Q4

REPORT INFORMATION
  Report Type: Spontaneous
  Country: CA (occurrence: CA)
  Receive Date: 20240820
  Receipt Date: 20241219
  Transmission Date: 20250115
  Serious: Yes (Hospitalization, Other)
  Sender: CELLTRION
  Company Number: CA-PFIZER INC-202300316191

PATIENT

DRUGS (9)
  1. INFLECTRA [Suspect]
     Active Substance: INFLIXIMAB-DYYB
     Indication: Colitis ulcerative
     Dosage: 1000 MG (7.5 MG/KG), EVERY 6 WEEKS
     Route: 042
     Dates: start: 20200109
  2. INFLECTRA [Suspect]
     Active Substance: INFLIXIMAB-DYYB
     Dosage: 1000 MG (7.5 MG/KG), EVERY 6 WEEKS
     Route: 042
     Dates: start: 20240516
  3. INFLECTRA [Suspect]
     Active Substance: INFLIXIMAB-DYYB
     Dosage: 1000 MG AFTER 6 WEEKS AND 5 DAYS
     Route: 042
     Dates: start: 20240702
  4. INFLECTRA [Suspect]
     Active Substance: INFLIXIMAB-DYYB
     Dosage: 1000 MG AFTER 5 WEEKS AND 3 DAYS (7.5 MG/KG), EVERY 6 WEEKS
     Route: 042
     Dates: start: 20240809
  5. INFLECTRA [Suspect]
     Active Substance: INFLIXIMAB-DYYB
     Dosage: 1000 MG AFTER 5 WEEKS AND 3 DAYS (7.5 MG/KG), EVERY 6 WEEKS
     Route: 042
     Dates: start: 20240919
  6. INFLECTRA [Suspect]
     Active Substance: INFLIXIMAB-DYYB
     Dosage: 1000 MG 5 WEEKS AND 5 DAYS (7.5 MG/KG, EVERY 6 WEEK)
     Route: 042
     Dates: start: 20241029
  7. INFLECTRA [Suspect]
     Active Substance: INFLIXIMAB-DYYB
     Dosage: 1000 MG, 6 WEEKS (7.5 MG/KG, EVERY 6 WEEKS)
     Route: 042
     Dates: start: 20241210
  8. IMURAN [Concomitant]
     Active Substance: AZATHIOPRINE
     Dosage: 150 MG, 1X/DAY
     Route: 048
  9. COBAMAMIDE [Concomitant]
     Active Substance: COBAMAMIDE
     Dosage: 1 DF (UNKNOWN DOSE AND FREQUENCY)
     Route: 065

REACTIONS (7)
  - Condition aggravated [Recovering/Resolving]
  - Influenza like illness [Recovered/Resolved]
  - Gout [Recovered/Resolved]
  - Off label use [Unknown]
  - Intentional product use issue [Unknown]
  - Off label use [Unknown]
  - Inappropriate schedule of product administration [Unknown]

NARRATIVE: CASE EVENT DATE: 20240101
